FAERS Safety Report 8899870 (Version 3)
Quarter: 2012Q4

REPORT INFORMATION
  Report Type: 
  Country: JP (occurrence: JP)
  Receive Date: 20121109
  Receipt Date: 20121126
  Transmission Date: 20130627
  Serious: Yes (Other)
  Sender: FDA-Public Use
  Company Number: PHHY2012JP102564

PATIENT
  Sex: Female

DRUGS (7)
  1. CICLOSPORIN [Suspect]
     Indication: MYASTHENIA GRAVIS
     Dosage: 150 mg, QD
     Route: 048
     Dates: start: 20101109
  2. PREDONINE [Concomitant]
     Indication: MYASTHENIA GRAVIS
     Dosage: 10 mg, QD
     Route: 048
  3. TACROLIMUS [Concomitant]
     Indication: MYASTHENIA GRAVIS
     Route: 048
  4. PYRIDOSTIGMINE BROMIDE [Concomitant]
     Indication: MYASTHENIA GRAVIS
     Route: 048
  5. OMEPRAL [Concomitant]
  6. SULFAMETHOXAZOLE AND TRIMETHOPRIM [Concomitant]
  7. LINEZOLID [Concomitant]

REACTIONS (7)
  - Sepsis [Recovering/Resolving]
  - Brain abscess [Recovering/Resolving]
  - Nocardiosis [Recovered/Resolved]
  - Renal abscess [Recovering/Resolving]
  - Disseminated intravascular coagulation [Recovering/Resolving]
  - Renal cancer [Recovering/Resolving]
  - Pneumonia [Recovering/Resolving]
